FAERS Safety Report 7063520-X (Version None)
Quarter: 2010Q4

REPORT INFORMATION
  Report Type: 
  Country: None (occurrence: None)
  Receive Date: 20101026
  Receipt Date: 20100506
  Transmission Date: 20110411
  Serious: No
  Sender: FDA-Public Use
  Company Number: US-ABBOTT-10P-163-0643401-00

PATIENT
  Sex: Female
  Weight: 50.848 kg

DRUGS (1)
  1. LUPRON DEPOT [Suspect]
     Indication: ABDOMINAL PAIN LOWER
     Dates: start: 20100201, end: 20100301

REACTIONS (3)
  - HOT FLUSH [None]
  - NAUSEA [None]
  - VOMITING [None]
